FAERS Safety Report 7223103-5 (Version None)
Quarter: 2011Q1

REPORT INFORMATION
  Report Type: 
  Country: None (occurrence: None)
  Receive Date: 20110112
  Receipt Date: 20110105
  Transmission Date: 20110831
  Serious: Yes (Life-Threatening)
  Sender: FDA-Public Use
  Company Number: JP-BRISTOL-MYERS SQUIBB COMPANY-15361249

PATIENT
  Age: 64 Year
  Sex: Male

DRUGS (3)
  1. VEPESID [Suspect]
     Indication: SMALL CELL LUNG CANCER STAGE UNSPECIFIED
     Dosage: 19APR2000-21APR2000(3 DAYS) 17MAY2000-19MAY2000(3 DAYS)
     Route: 041
     Dates: start: 20000419, end: 20000519
  2. TOPOTECAN [Suspect]
     Indication: SMALL CELL LUNG CANCER STAGE UNSPECIFIED
     Dosage: 27JUN2000-11JUL2000(3 DAYS) 3AUG2000-18AUG2000(3 DAYS)
     Route: 041
     Dates: start: 20000627, end: 20000818
  3. RANDA [Suspect]
     Indication: SMALL CELL LUNG CANCER STAGE UNSPECIFIED
     Dosage: 145MG:17MAY2000(1D) 145MG:17MAY-19MAY2000(1D) 110MG:27JUN2000(1D) 110MG:03AUG2000(1D)
     Route: 041
     Dates: start: 20000517, end: 20000803

REACTIONS (1)
  - LEIOMYOSARCOMA [None]
